FAERS Safety Report 4537913-6 (Version None)
Quarter: 2004Q4

REPORT INFORMATION
  Report Type: 
  Country: None (occurrence: None)
  Receive Date: 20041224
  Receipt Date: 20041213
  Transmission Date: 20050328
  Serious: Yes (Life-Threatening, Hospitalization, Other)
  Sender: FDA-Public Use
  Company Number: PHNU2004DE04163

PATIENT
  Age: 64 Year
  Sex: Male

DRUGS (5)
  1. ALLOPURINOL [Concomitant]
     Indication: HYPERURICAEMIA
     Dosage: 300MG/DAY
     Route: 048
     Dates: start: 20041104, end: 20041209
  2. AMPICILLIN SODIUM/SULBACTAM SODIUM [Concomitant]
     Dosage: 1 DF, TID
     Route: 048
     Dates: start: 20041204, end: 20041208
  3. NEORECORMON ^ROCHE^ [Concomitant]
     Indication: ANAEMIA
     Dates: start: 20041130
  4. GLEEVEC [Suspect]
     Indication: CHRONIC MYELOID LEUKAEMIA
     Dosage: 600MG/DAY
     Route: 048
     Dates: start: 20041118, end: 20041129
  5. GLEEVEC [Suspect]
     Dosage: 400MG/DAY
     Route: 048
     Dates: start: 20041130, end: 20041209

REACTIONS (18)
  - ALANINE AMINOTRANSFERASE INCREASED [None]
  - ANAEMIA [None]
  - ASCITES [None]
  - ASPARTATE AMINOTRANSFERASE INCREASED [None]
  - ASPIRATION PLEURAL CAVITY [None]
  - BLOOD ALKALINE PHOSPHATASE INCREASED [None]
  - C-REACTIVE PROTEIN INCREASED [None]
  - CARDIAC FAILURE [None]
  - DIARRHOEA [None]
  - FIBRIN D DIMER DECREASED [None]
  - HAEMOGLOBIN DECREASED [None]
  - PERICARDIAL DRAINAGE [None]
  - PERICARDIAL EFFUSION [None]
  - PLEURAL EFFUSION [None]
  - POLYSEROSITIS [None]
  - PYREXIA [None]
  - THROMBOCYTOPENIA [None]
  - TRANSAMINASES INCREASED [None]
